FAERS Safety Report 8766008 (Version 1)
Quarter: 2012Q4

REPORT INFORMATION
  Report Type: 
  Country: US (occurrence: US)
  Receive Date: 20120904
  Receipt Date: 20120904
  Transmission Date: 20130627
  Serious: No
  Sender: FDA-Public Use
  Company Number: US-AMGEN-USASP2012053875

PATIENT
  Age: 50 Year
  Sex: Male

DRUGS (1)
  1. ENBREL [Suspect]
     Indication: DERMATITIS
     Dosage: 50 UNK, 2 times/wk
     Route: 058
     Dates: start: 20120721

REACTIONS (1)
  - Drug ineffective for unapproved indication [Not Recovered/Not Resolved]
